FAERS Safety Report 10301950 (Version 2)
Quarter: 2014Q1

REPORT INFORMATION
  Report Type: Spontaneous
  Country: US (occurrence: None)
  Receive Date: 20120817
  Receipt Date: 20130815
  Transmission Date: 20141002
  Serious: Yes (Hospitalization, Other)
  Sender: FDA-Public Use
  Company Number: ADR-2012-00668

PATIENT
  Age: 32 Year
  Sex: Male

DRUGS (4)
  1. BACLOFEN INTRATHECAL (BACLOFEN INJECTION) [Suspect]
     Indication: MUSCLE SPASTICITY
  2. BACLOFEN INTRATHECAL (BACLOFEN INJECTION) [Suspect]
  3. EFFEXOR [Concomitant]
  4. CLONAZEPAM [Concomitant]

REACTIONS (11)
  - No therapeutic response [None]
  - Muscle spasms [None]
  - Cold sweat [None]
  - Pain [None]
  - Pyrexia [None]
  - Muscle spasticity [None]
  - Body temperature fluctuation [None]
  - Musculoskeletal stiffness [None]
  - Drug withdrawal syndrome [None]
  - Tremor [None]
  - Staphylococcal skin infection [None]
